FAERS Safety Report 7357280-2 (Version None)
Quarter: 2011Q1

REPORT INFORMATION
  Report Type: 
  Country: None (occurrence: None)
  Receive Date: 20110308
  Receipt Date: 20110223
  Transmission Date: 20110831
  Serious: Yes (Other)
  Sender: FDA-Public Use
  Company Number: 028165

PATIENT
  Weight: 79.3795 kg

DRUGS (12)
  1. CAPSAICIN [Concomitant]
  2. CIMZIA [Suspect]
     Indication: CROHN'S DISEASE
     Dosage: (200 MG 1X/2 WEEKS SUBCUTANEOUS)
     Route: 058
     Dates: end: 20110221
  3. CENTRUM SILVER /01292501/ [Concomitant]
  4. OXYCONTIN [Concomitant]
  5. SIMETHICONE [Concomitant]
  6. MAGNESIUM OXIDE [Concomitant]
  7. VITAMIN D2 [Concomitant]
  8. FERROUS SULFATE TAB [Concomitant]
  9. CITRICAL /00108001/ [Concomitant]
  10. NEXIUM /01479303/ [Concomitant]
  11. CYANOCOBALAMIN [Concomitant]
  12. PERCOCET [Concomitant]

REACTIONS (3)
  - FATIGUE [None]
  - PSORIASIS [None]
  - GASTROINTESTINAL INFECTION [None]
